FAERS Safety Report 19144861 (Version 1)
Quarter: 2021Q2

REPORT INFORMATION
  Report Type: Report from Study
  Country: JP (occurrence: JP)
  Receive Date: 20210416
  Receipt Date: 20210416
  Transmission Date: 20210717
  Serious: Yes (Hospitalization)
  Sender: FDA-Public Use
  Company Number: JP-CELLTRION INC.-2021JP004913

PATIENT

DRUGS (7)
  1. CT?P13 [Suspect]
     Active Substance: INFLIXIMAB-DYYB
     Dosage: 290 MG
     Route: 041
     Dates: start: 20191217, end: 20191217
  2. CT?P13 [Suspect]
     Active Substance: INFLIXIMAB-DYYB
     Dosage: 285 MG
     Route: 041
     Dates: start: 20190618, end: 20190618
  3. MESALAZINE [Concomitant]
     Active Substance: MESALAMINE
     Dosage: 4000 MILLIGRAM, DAILY
     Route: 048
  4. CT?P13 [Suspect]
     Active Substance: INFLIXIMAB-DYYB
     Dosage: 300 MG
     Route: 041
     Dates: start: 20201215, end: 20201215
  5. CT?P13 [Suspect]
     Active Substance: INFLIXIMAB-DYYB
     Indication: COLITIS ULCERATIVE
     Dosage: 290 MG
     Route: 041
     Dates: start: 20181218, end: 20181218
  6. CT?P13 [Suspect]
     Active Substance: INFLIXIMAB-DYYB
     Dosage: 280 MG
     Route: 041
     Dates: start: 20190219, end: 20190219
  7. CT?P13 [Suspect]
     Active Substance: INFLIXIMAB-DYYB
     Dosage: 295 MG
     Route: 041
     Dates: start: 20190416, end: 20190416

REACTIONS (6)
  - Nasopharyngitis [Recovered/Resolved]
  - Upper respiratory tract inflammation [Recovered/Resolved]
  - Overdose [Unknown]
  - Anal fistula [Recovered/Resolved]
  - Product use issue [Unknown]
  - Off label use [Unknown]

NARRATIVE: CASE EVENT DATE: 20190124
